FAERS Safety Report 8606816 (Version 3)
Quarter: 2014Q1

REPORT INFORMATION
  Report Type: Spontaneous
  Country: US (occurrence: US)
  Receive Date: 20120611
  Receipt Date: 20140108
  Transmission Date: 20141002
  Serious: Yes (Hospitalization, Disabling, Other)
  Sender: FDA-Public Use
  Company Number: US-ASTRAZENECA-2012SE36254

PATIENT
  Age: 50 Year
  Sex: Male

DRUGS (16)
  1. NEXIUM [Suspect]
     Indication: GASTROOESOPHAGEAL REFLUX DISEASE
     Dosage: 1-2 PER DAY
     Route: 048
     Dates: start: 2001
  2. NEXIUM [Suspect]
     Indication: DYSPEPSIA
     Dosage: 1-2 PER DAY
     Route: 048
     Dates: start: 2001
  3. NEXIUM [Suspect]
     Indication: GASTROOESOPHAGEAL REFLUX DISEASE
     Route: 048
     Dates: start: 20061204
  4. NEXIUM [Suspect]
     Indication: DYSPEPSIA
     Route: 048
     Dates: start: 20061204
  5. PRILOSEC [Suspect]
     Dosage: 4 MG, PER DAY
     Route: 048
  6. PRILOSEC OTC [Suspect]
     Indication: GASTROOESOPHAGEAL REFLUX DISEASE
     Route: 048
  7. PRILOSEC OTC [Suspect]
     Indication: GASTROOESOPHAGEAL REFLUX DISEASE
     Route: 048
  8. PRILOSEC OTC [Suspect]
     Indication: DYSPEPSIA
     Route: 048
  9. ACIPHEX [Concomitant]
  10. ZANTAC [Concomitant]
  11. TAGAMET [Concomitant]
     Dates: start: 1980
  12. PEPCID [Concomitant]
  13. TUMS [Concomitant]
     Dosage: 12-15 DAILY
     Dates: start: 1970
  14. MYLANTA [Concomitant]
     Indication: DYSPEPSIA
  15. ALKA SELTZER [Concomitant]
     Indication: DYSPEPSIA
  16. AMBIEN [Concomitant]
     Dates: start: 20061211

REACTIONS (8)
  - Convulsion [Unknown]
  - Brain injury [Unknown]
  - Ill-defined disorder [Unknown]
  - Osteoporosis [Unknown]
  - Arthritis [Unknown]
  - Multiple fractures [Unknown]
  - Foot fracture [Unknown]
  - Depression [Unknown]
